FAERS Safety Report 5903795-0 (Version None)
Quarter: 2008Q3

REPORT INFORMATION
  Report Type: 
  Country: None (occurrence: None)
  Receive Date: 20080919
  Receipt Date: 20080711
  Transmission Date: 20090109
  Serious: Yes (Other)
  Sender: FDA-Public Use
  Company Number: US-WYE-H05064208

PATIENT
  Age: 52 Year
  Sex: Male

DRUGS (2)
  1. PRISTIQ [Suspect]
     Indication: MAJOR DEPRESSION
     Dosage: 50 MG 1X PER 1 DAY, ORAL
     Route: 048
     Dates: start: 20080630, end: 20080707
  2. PROVIGIL [Suspect]
     Dosage: 200 MG - FREQUENCY UNSPECIFIED, ORAL
     Route: 048
     Dates: start: 20080630

REACTIONS (1)
  - BLOOD URINE PRESENT [None]
